FAERS Safety Report 14347436 (Version 1)
Quarter: 2017Q4

REPORT INFORMATION
  Report Type: Spontaneous
  Country: US (occurrence: US)
  Receive Date: 20171230
  Receipt Date: 20171230
  Transmission Date: 20180321
  Serious: Yes (Hospitalization)
  Sender: FDA-Public Use
  Company Number: None

PATIENT
  Age: 2 Year
  Sex: Male
  Weight: 9.66 kg

DRUGS (4)
  1. DOXORUBICIN HYDROCHLORIDE. [Suspect]
     Active Substance: DOXORUBICIN HYDROCHLORIDE
     Dates: end: 20171212
  2. VINCRISTINE SULFATE. [Suspect]
     Active Substance: VINCRISTINE SULFATE
     Dates: end: 20171219
  3. CISPLATIN. [Suspect]
     Active Substance: CISPLATIN
     Dates: end: 20171211
  4. 5-FLUOROURACIL (5-FU) [Suspect]
     Active Substance: FLUOROURACIL
     Dates: end: 20171212

REACTIONS (11)
  - Pallor [None]
  - Tachycardia [None]
  - Oxygen saturation decreased [None]
  - Pyrexia [None]
  - White blood cell count decreased [None]
  - Blood potassium decreased [None]
  - Pneumonia [None]
  - Haemoglobin decreased [None]
  - Lung infection [None]
  - Dyspnoea [None]
  - Tachypnoea [None]

NARRATIVE: CASE EVENT DATE: 20171218
